FAERS Safety Report 8621898-7 (Version None)
Quarter: 2012Q3

REPORT INFORMATION
  Report Type: 
  Country: None (occurrence: None)
  Receive Date: 20120822
  Receipt Date: 20120822
  Transmission Date: 20120928
  Serious: Yes (Other)
  Sender: FDA-Public Use
  Company Number: None

PATIENT
  Age: 41 Year
  Sex: Male
  Weight: 61.2356 kg

DRUGS (1)
  1. AVELOX [Suspect]
     Indication: SINUSITIS
     Dosage: 1, 3 TIMES, PO
     Route: 048
     Dates: start: 20120815, end: 20120817

REACTIONS (6)
  - HYPOAESTHESIA [None]
  - PRODUCT QUALITY ISSUE [None]
  - TENDON DISORDER [None]
  - BONE PAIN [None]
  - ARTHRALGIA [None]
  - PARAESTHESIA [None]
